FAERS Safety Report 21810720 (Version 6)
Quarter: 2023Q1

REPORT INFORMATION
  Report Type: Spontaneous
  Country: US (occurrence: US)
  Receive Date: 20230103
  Receipt Date: 20230306
  Transmission Date: 20230418
  Serious: No
  Sender: FDA-Public Use
  Company Number: US-PFIZER INC-PV202200133642

PATIENT
  Age: 51 Year
  Sex: Female

DRUGS (2)
  1. IBRANCE [Suspect]
     Active Substance: PALBOCICLIB
     Dosage: 125 MG, CYCLIC
     Dates: start: 20221219
  2. XARELTO [Suspect]
     Active Substance: RIVAROXABAN
     Dosage: UNK
     Dates: end: 202212

REACTIONS (10)
  - Increased tendency to bruise [Unknown]
  - Alopecia [Unknown]
  - Fatigue [Unknown]
  - Hot flush [Unknown]
  - Increased appetite [Unknown]
  - Nausea [Unknown]
  - Decreased appetite [Unknown]
  - Night sweats [Unknown]
  - Influenza like illness [Unknown]
  - Taste disorder [Unknown]
